FAERS Safety Report 7320697-6 (Version None)
Quarter: 2011Q1

REPORT INFORMATION
  Report Type: 
  Country: None (occurrence: None)
  Receive Date: 20110223
  Receipt Date: 20110223
  Transmission Date: 20110831
  Serious: Yes (Other)
  Sender: FDA-Public Use
  Company Number: None

PATIENT
  Age: 41 Year
  Sex: Female
  Weight: 60.782 kg

DRUGS (1)
  1. CAMPRAL [Suspect]
     Indication: ALCOHOLISM
     Dates: start: 20101031, end: 20110210

REACTIONS (3)
  - WEIGHT DECREASED [None]
  - DIARRHOEA [None]
  - CHANGE OF BOWEL HABIT [None]
